FAERS Safety Report 8756958 (Version 5)
Quarter: 2013Q2

REPORT INFORMATION
  Report Type: Spontaneous
  Country: US (occurrence: US)
  Receive Date: 20120828
  Receipt Date: 20130515
  Transmission Date: 20140414
  Serious: Yes (Other)
  Sender: FDA-Public Use
  Company Number: US-009507513-1208USA003421

PATIENT
  Age: 54 Year
  Sex: Male
  Weight: 67.53 kg

DRUGS (6)
  1. VICTRELIS [Suspect]
     Indication: HEPATITIS C
     Dosage: 800 MG, TID
     Route: 048
     Dates: start: 20120704, end: 20121213
  2. RIBAVIRIN (WARRICK) [Suspect]
     Indication: HEPATITIS C
     Dosage: 1000 MG, QD
     Route: 048
     Dates: start: 20120530, end: 20120918
  3. RIBAVIRIN (WARRICK) [Suspect]
     Dosage: 400 MG, BID
     Route: 048
     Dates: start: 20120919, end: 20121113
  4. RIBAVIRIN (WARRICK) [Suspect]
     Dosage: 200 MG, QAM
     Route: 048
     Dates: start: 20121114, end: 20121213
  5. RIBAVIRIN (WARRICK) [Suspect]
     Dosage: 400 MG, QPM
     Route: 048
     Dates: start: 20121114, end: 20121213
  6. PEGASYS [Suspect]
     Indication: HEPATITIS C
     Dosage: UNK
     Dates: start: 20120530, end: 20121129

REACTIONS (44)
  - Anaemia [Recovered/Resolved]
  - Influenza [Unknown]
  - Social avoidant behaviour [Unknown]
  - Skin reaction [Unknown]
  - Breath odour [Unknown]
  - Night sweats [Unknown]
  - Appetite disorder [Unknown]
  - Breath odour [Unknown]
  - Memory impairment [Unknown]
  - Mental impairment [Unknown]
  - Musculoskeletal discomfort [Unknown]
  - Dyspnoea [Unknown]
  - Skin infection [Unknown]
  - Anger [Unknown]
  - Disturbance in attention [Unknown]
  - Body temperature increased [Unknown]
  - Dysphonia [Unknown]
  - Depression [Unknown]
  - Weight decreased [Unknown]
  - Chills [Unknown]
  - Asthenia [Unknown]
  - Chills [Unknown]
  - Diarrhoea [Unknown]
  - Rash [Unknown]
  - Fatigue [Recovering/Resolving]
  - Dysgeusia [Unknown]
  - Decreased appetite [Unknown]
  - Diarrhoea [Unknown]
  - Chills [Unknown]
  - Fatigue [Unknown]
  - Fatigue [Unknown]
  - Diarrhoea [Unknown]
  - Fatigue [Unknown]
  - Fatigue [Unknown]
  - Decreased appetite [Unknown]
  - Nausea [Unknown]
  - Fatigue [Unknown]
  - Skin disorder [Unknown]
  - Infection [Recovered/Resolved]
  - Decreased appetite [Unknown]
  - Dysgeusia [Unknown]
  - Weight decreased [Unknown]
  - Diarrhoea [Recovered/Resolved]
  - Fatigue [Unknown]
